FAERS Safety Report 18595251 (Version 1)
Quarter: 2020Q4

REPORT INFORMATION
  Report Type: Spontaneous
  Country: GB (occurrence: GB)
  Receive Date: 20201209
  Receipt Date: 20201209
  Transmission Date: 20210114
  Serious: Yes (Other)
  Sender: FDA-Public Use
  Company Number: GB-BAYER-2020-248498

PATIENT
  Age: 65 Year
  Sex: Male

DRUGS (3)
  1. BIVALIRUDIN. [Concomitant]
     Active Substance: BIVALIRUDIN
  2. APROTININ [Suspect]
     Active Substance: APROTININ
     Indication: AORTIC VALVE REPLACEMENT
     Dosage: 1 MILLION KUI
     Route: 065
  3. BIVALIRUDIN. [Concomitant]
     Active Substance: BIVALIRUDIN

REACTIONS (4)
  - Coagulopathy [Recovered/Resolved]
  - Off label use [None]
  - Product use in unapproved indication [Recovered/Resolved]
  - Procedural haemorrhage [Recovered/Resolved]
